FAERS Safety Report 15710916 (Version 4)
Quarter: 2019Q3

REPORT INFORMATION
  Report Type: Spontaneous
  Country: US (occurrence: US)
  Receive Date: 20181211
  Receipt Date: 20190709
  Transmission Date: 20191004
  Serious: Yes (Other)
  Sender: FDA-Public Use
  Company Number: US-SA-2018SA335998

PATIENT
  Age: 65 Year
  Sex: Female
  Weight: 65 kg

DRUGS (6)
  1. LISINOPRIL. [Concomitant]
     Active Substance: LISINOPRIL
  2. TAXOTERE [Suspect]
     Active Substance: DOCETAXEL
     Indication: BREAST CANCER FEMALE
     Dosage: 60 MG, Q3W
     Route: 042
     Dates: start: 20120705, end: 20120705
  3. NEOSAR [Concomitant]
     Active Substance: CYCLOPHOSPHAMIDE
     Dosage: UNK
  4. CYCLOPHOSPHAMIDE. [Concomitant]
     Active Substance: CYCLOPHOSPHAMIDE
  5. TAXOTERE [Suspect]
     Active Substance: DOCETAXEL
     Dosage: 60 MG, Q3W
     Route: 042
     Dates: start: 20120906, end: 20120906
  6. HERCEPTIN [Concomitant]
     Active Substance: TRASTUZUMAB

REACTIONS (1)
  - Alopecia [Recovering/Resolving]

NARRATIVE: CASE EVENT DATE: 201303
